FAERS Safety Report 21186391 (Version 1)
Quarter: 2022Q3

REPORT INFORMATION
  Report Type: Spontaneous
  Country: CN (occurrence: CN)
  Receive Date: 20220808
  Receipt Date: 20220808
  Transmission Date: 20221027
  Serious: Yes (Hospitalization, Other)
  Sender: FDA-Public Use
  Company Number: None

PATIENT
  Age: 48 Year
  Sex: Female
  Weight: 93.7 kg

DRUGS (6)
  1. CYCLOPHOSPHAMIDE [Suspect]
     Active Substance: CYCLOPHOSPHAMIDE
     Indication: Breast cancer female
     Dosage: 1200 MG, QD, CYCLOPHOSPHAMIDE 1200MG DILUTED WITH SODIUM CHLORIDE 100 ML
     Route: 041
     Dates: start: 20220707, end: 20220707
  2. SODIUM CHLORIDE [Suspect]
     Active Substance: SODIUM CHLORIDE
     Indication: Vehicle solution use
     Dosage: 100 ML, QD, CYCLOPHOSPHAMIDE (1200 MG) DILUTED WITH SODIUM CHLORIDE 100 ML
     Route: 041
     Dates: start: 20220707, end: 20220707
  3. DOXORUBICIN HYDROCHLORIDE [Suspect]
     Active Substance: DOXORUBICIN HYDROCHLORIDE
     Indication: Breast cancer female
     Dosage: 120 MG, QD, DOXORUBICIN 120MG DILUTED WITH STERILE WATER FOR INJECTION (60 ML)
     Route: 041
     Dates: start: 20220707, end: 20220707
  4. STERILE WATER [Suspect]
     Active Substance: WATER
     Indication: Vehicle solution use
     Dosage: 60 ML, QD, STERILE WATER FOR INJECTION DILUTED WITH DOXORUBICIN (120 MG)
     Route: 041
     Dates: start: 20220707, end: 20220707
  5. PALONOSETRON HYDROCHLORIDE [Concomitant]
     Active Substance: PALONOSETRON HYDROCHLORIDE
     Indication: Prophylaxis of nausea and vomiting
     Dosage: 0.25 MG, QD, ROUTE INTRAVENOUS INJECTION
     Route: 042
     Dates: start: 20220707, end: 20220707
  6. DEXAMETHASONE SODIUM PHOSPHATE [Concomitant]
     Active Substance: DEXAMETHASONE SODIUM PHOSPHATE
     Indication: Prophylaxis of nausea and vomiting
     Dosage: 10 MG, QD, INTRAVENOUS INJECTION
     Route: 042
     Dates: start: 20220707, end: 20220707

REACTIONS (2)
  - White blood cell count decreased [Recovering/Resolving]
  - Neutrophil count decreased [Recovering/Resolving]

NARRATIVE: CASE EVENT DATE: 20220720
